FAERS Safety Report 10677838 (Version 1)
Quarter: 2014Q4

REPORT INFORMATION
  Report Type: Spontaneous
  Country: US (occurrence: None)
  Receive Date: 20141223
  Receipt Date: 20141223
  Transmission Date: 20150529
  Serious: Yes (Hospitalization, Other)
  Sender: FDA-Public Use
  Company Number: 2014RD000066

PATIENT
  Age: 61 Year
  Sex: Male

DRUGS (12)
  1. ATROVENT [Suspect]
     Active Substance: IPRATROPIUM BROMIDE
     Indication: CHRONIC OBSTRUCTIVE PULMONARY DISEASE
  2. OXYBUTYNIN [Concomitant]
     Active Substance: OXYBUTYNIN
  3. IPRATROPIUM BROMIDE AND ALBUTEROL SULFATE INHALATION SOLUTION, 0.5 MG/ 3 MG PER 3 M L [Suspect]
     Active Substance: ALBUTEROL SULFATE\IPRATROPIUM BROMIDE
     Indication: CHRONIC OBSTRUCTIVE PULMONARY DISEASE
     Dosage: ; QID ; INH
  4. COREG [Concomitant]
     Active Substance: CARVEDILOL
  5. CLOPIDOGREL BISULFATE. [Concomitant]
     Active Substance: CLOPIDOGREL BISULFATE
  6. ADVAIR HFA [Suspect]
     Active Substance: FLUTICASONE PROPIONATE\SALMETEROL XINAFOATE
     Indication: CHRONIC OBSTRUCTIVE PULMONARY DISEASE
     Dosage: 1 PUFF ; BID ; INH
     Dates: start: 2007
  7. NEURONTIN [Concomitant]
     Active Substance: GABAPENTIN
  8. THEOPHYLLINE [Concomitant]
     Active Substance: THEOPHYLLINE ANHYDROUS
  9. PLETAL [Concomitant]
     Active Substance: CILOSTAZOL
  10. ASPIRIN. [Concomitant]
     Active Substance: ASPIRIN
  11. ROFLUMILAST [Concomitant]
     Active Substance: ROFLUMILAST
  12. PRAVASTATIN [Concomitant]
     Active Substance: PRAVASTATIN\PRAVASTATIN SODIUM

REACTIONS (4)
  - Respiratory failure [None]
  - Nervousness [None]
  - Tremor [None]
  - Memory impairment [None]
